FAERS Safety Report 12192946 (Version 4)
Quarter: 2016Q2

REPORT INFORMATION
  Report Type: Report from Study
  Country: AU (occurrence: AU)
  Receive Date: 20160318
  Receipt Date: 20160524
  Transmission Date: 20160815
  Serious: Yes (Hospitalization)
  Sender: FDA-Public Use
  Company Number: AU-KADMON PHARMACEUTICALS, LLC-KAD201603-001000

PATIENT
  Age: 57 Year
  Sex: Male

DRUGS (5)
  1. RIBAVIRIN 200 MG TABLETS [Suspect]
     Active Substance: RIBAVIRIN
     Route: 048
     Dates: start: 201512
  2. RIBAVIRIN 200 MG TABLETS [Suspect]
     Active Substance: RIBAVIRIN
     Indication: HEPATITIS C
     Route: 048
     Dates: start: 20151120
  3. VIEKIRA PAK [Suspect]
     Active Substance: DASABUVIR\OMBITASVIR\PARITAPREVIR\RITONAVIR
     Indication: HEPATITIS C
     Dosage: 12.5/75/50 MG TWO TABLETS IN THE MORNING; 250 MG ONE TABLET BID (TWO IN ONE DAY)
     Route: 048
     Dates: start: 20151120
  4. RIBAVIRIN 200 MG TABLETS [Suspect]
     Active Substance: RIBAVIRIN
     Route: 048
     Dates: end: 201512
  5. TACROLIMUS. [Suspect]
     Active Substance: TACROLIMUS
     Indication: LIVER TRANSPLANT
     Dosage: TABLET
     Route: 048
     Dates: start: 201308

REACTIONS (13)
  - Mouth ulceration [Unknown]
  - Feeling abnormal [Unknown]
  - Gastroenteritis cryptosporidial [Unknown]
  - Nausea [Unknown]
  - Insomnia [Unknown]
  - Diarrhoea [Unknown]
  - Tongue ulceration [Unknown]
  - Pallor [Unknown]
  - Headache [Unknown]
  - Malaise [Unknown]
  - Fatigue [Unknown]
  - Decreased immune responsiveness [Unknown]
  - Drug level increased [Unknown]

NARRATIVE: CASE EVENT DATE: 20151128
